FAERS Safety Report 6702341-1 (Version None)
Quarter: 2010Q2

REPORT INFORMATION
  Report Type: 
  Country: None (occurrence: None)
  Receive Date: 20100429
  Receipt Date: 20100421
  Transmission Date: 20101027
  Serious: Yes (Death, Other)
  Sender: FDA-Public Use
  Company Number: BE-WYE-H14821410

PATIENT
  Sex: Male

DRUGS (3)
  1. AMIODARONE [Suspect]
     Indication: ARRHYTHMIA
     Dosage: UNSPECIFIED
     Dates: start: 20050401
  2. SIMVASTATIN [Concomitant]
  3. ASAFLOW [Concomitant]

REACTIONS (2)
  - ASTHENIA [None]
  - HYPERTHYROIDISM [None]
